FAERS Safety Report 6215588-8 (Version None)
Quarter: 2009Q2

REPORT INFORMATION
  Report Type: 
  Country: None (occurrence: None)
  Receive Date: 20090603
  Receipt Date: 20090603
  Transmission Date: 20091009
  Serious: Yes (Hospitalization)
  Sender: FDA-Public Use
  Company Number: None

PATIENT
  Age: 37 Year
  Sex: Female
  Weight: 58.9676 kg

DRUGS (2)
  1. PROLIXIN [Suspect]
     Dosage: SMALL 2 WEEKS BETWEEN BOTH ARM
     Dates: start: 19870701
  2. CYCOTROPICS [Suspect]
     Indication: BIPOLAR DISORDER
     Dosage: HEAVY DAILY ORALLY - (INTO CYCOTROPICS)
     Route: 048

REACTIONS (1)
  - PITUITARY TUMOUR BENIGN [None]
